FAERS Safety Report 15850218 (Version 2)
Quarter: 2020Q1

REPORT INFORMATION
  Report Type: Spontaneous
  Country: US (occurrence: US)
  Receive Date: 20190121
  Receipt Date: 20200204
  Transmission Date: 20200409
  Serious: No
  Sender: FDA-Public Use
  Company Number: US-PFIZER INC-2018259242

PATIENT
  Age: 60 Year
  Sex: Female

DRUGS (9)
  1. OMEPRAZOLE. [Concomitant]
     Active Substance: OMEPRAZOLE
     Dosage: UNK
  2. PARAPLATIN [Concomitant]
     Active Substance: CARBOPLATIN
     Indication: CHEMOTHERAPY
     Dosage: UNK
  3. DIOVAN [Concomitant]
     Active Substance: VALSARTAN
     Dosage: UNK
  4. MAXZIDE [Concomitant]
     Active Substance: HYDROCHLOROTHIAZIDE\TRIAMTERENE
     Dosage: UNK
  5. TAXOL [Concomitant]
     Active Substance: PACLITAXEL
     Indication: CHEMOTHERAPY
     Dosage: UNK
  6. DOCETAXEL. [Suspect]
     Active Substance: DOCETAXEL
     Indication: NON-SMALL CELL LUNG CANCER
     Dosage: 60 MG/M2, CYCLIC (EVERY THREE WEEKS, 06 CYCLES)
     Dates: start: 20160526, end: 20161007
  7. PROVENTIL [Concomitant]
     Active Substance: ALBUTEROL
     Dosage: UNK
  8. METOPROLOL. [Concomitant]
     Active Substance: METOPROLOL
     Dosage: UNK
  9. SYNTHROID [Concomitant]
     Active Substance: LEVOTHYROXINE SODIUM
     Dosage: UNK

REACTIONS (4)
  - Hair texture abnormal [Unknown]
  - Alopecia [Not Recovered/Not Resolved]
  - Hair colour changes [Unknown]
  - Hair disorder [Unknown]

NARRATIVE: CASE EVENT DATE: 201607
